FAERS Safety Report 7257935 (Version 12)
Quarter: 2014Q4

REPORT INFORMATION
  Report Type: Spontaneous
  Country: US (occurrence: US)
  Receive Date: 20091201
  Receipt Date: 20141013
  Transmission Date: 20150529
  Serious: Yes (Hospitalization, Other)
  Sender: FDA-Public Use
  Company Number: US-009507513-2009SP021070

PATIENT
  Sex: Female
  Weight: 86.64 kg

DRUGS (3)
  1. NEURONTIN [Concomitant]
     Active Substance: GABAPENTIN
     Indication: PAIN IN EXTREMITY
     Dosage: 800 MG, TID
     Route: 048
  2. AMITRIPTYLINE HYDROCHLORIDE. [Concomitant]
     Active Substance: AMITRIPTYLINE HYDROCHLORIDE
     Indication: PAIN IN EXTREMITY
     Dosage: 25 MG, HS
     Route: 048
  3. NUVARING [Suspect]
     Active Substance: ETHINYL ESTRADIOL\ETONOGESTREL
     Indication: CONTRACEPTION
     Route: 067
     Dates: start: 20050525, end: 200605

REACTIONS (23)
  - Cerebral cyst [Unknown]
  - Chest pain [Unknown]
  - Embolism arterial [Not Recovered/Not Resolved]
  - Vaginal discharge [Unknown]
  - Peripheral artery thrombosis [Unknown]
  - Sleep apnoea syndrome [Unknown]
  - Anxiety [Unknown]
  - Vulval disorder [Unknown]
  - Carotid artery stent insertion [Unknown]
  - Gallbladder operation [Unknown]
  - Acute myocardial infarction [Unknown]
  - Hypnopompic hallucination [Unknown]
  - Cholecystitis [Recovered/Resolved]
  - Multiple sclerosis [Unknown]
  - Dyspnoea [Unknown]
  - Abortion spontaneous [Unknown]
  - Hidradenitis [Unknown]
  - Arterial occlusive disease [Unknown]
  - Peripheral vascular disorder [Unknown]
  - Antiphospholipid syndrome [Unknown]
  - Deep vein thrombosis [Unknown]
  - Coronary artery disease [Unknown]
  - Acne [Unknown]

NARRATIVE: CASE EVENT DATE: 2005
